FAERS Safety Report 24730707 (Version 1)
Quarter: 2024Q4

REPORT INFORMATION
  Report Type: Spontaneous
  Country: JP (occurrence: JP)
  Receive Date: 20241213
  Receipt Date: 20241213
  Transmission Date: 20250115
  Serious: Yes (Other)
  Sender: MYLAN
  Company Number: JP-MYLANLABS-2024M1111062

PATIENT
  Age: 55 Year
  Sex: Female

DRUGS (5)
  1. PREDNISOLONE [Suspect]
     Active Substance: PREDNISOLONE
     Indication: Generalised pustular psoriasis
     Dosage: 30 MILLIGRAM, QD
     Route: 065
  2. CYCLOSPORINE [Suspect]
     Active Substance: CYCLOSPORINE
     Indication: Generalised pustular psoriasis
     Dosage: 125 MILLIGRAM, QD
     Route: 065
  3. HYDROXYCHLOROQUINE [Concomitant]
     Active Substance: HYDROXYCHLOROQUINE
     Indication: Systemic lupus erythematosus
     Dosage: 200 MILLIGRAM, QD
     Route: 065
  4. CEFACLOR [Concomitant]
     Active Substance: CEFACLOR
     Indication: Paronychia
     Dosage: UNK
     Route: 065
  5. CEFACLOR [Concomitant]
     Active Substance: CEFACLOR
     Indication: Infection

REACTIONS (1)
  - Drug ineffective [Unknown]
